FAERS Safety Report 14920734 (Version 1)
Quarter: 2018Q2

REPORT INFORMATION
  Report Type: Spontaneous
  Country: US (occurrence: US)
  Receive Date: 20180521
  Receipt Date: 20180521
  Transmission Date: 20180711
  Serious: No
  Sender: FDA-Public Use
  Company Number: US-STALLERGENES SAS-2048163

PATIENT
  Age: 16 Year
  Sex: Female

DRUGS (3)
  1. ORALAIR [Suspect]
     Active Substance: ANTHOXANTHUM ODORATUM POLLEN\DACTYLIS GLOMERATA POLLEN\LOLIUM PERENNE POLLEN\PHLEUM PRATENSE POLLEN\POA PRATENSIS POLLEN
     Indication: SEASONAL ALLERGY
     Route: 060
     Dates: start: 20170814
  2. CEFUROXIME AXETIL. [Concomitant]
     Active Substance: CEFUROXIME AXETIL
  3. SUMATRIPTAN. [Concomitant]
     Active Substance: SUMATRIPTAN

REACTIONS (2)
  - Ear discomfort [Recovered/Resolved]
  - Oral discomfort [Recovered/Resolved]
